FAERS Safety Report 14986230 (Version 5)
Quarter: 2019Q3

REPORT INFORMATION
  Report Type: Report from Study
  Country: US (occurrence: US)
  Receive Date: 20180607
  Receipt Date: 20190731
  Transmission Date: 20191004
  Serious: Yes (Hospitalization, Other)
  Sender: FDA-Public Use
  Company Number: US-ACTELION-A-NJ2018-172870

PATIENT
  Age: 57 Year
  Sex: Female
  Weight: 49.89 kg

DRUGS (14)
  1. OPSUMIT [Suspect]
     Active Substance: MACITENTAN
     Indication: PULMONARY ARTERIAL HYPERTENSION
     Dosage: 10 MG, QD
     Route: 048
     Dates: start: 20180518
  2. TEMAZEPAM. [Concomitant]
     Active Substance: TEMAZEPAM
     Dosage: 30 MG, QD
  3. LEVOTHYROXINE. [Concomitant]
     Active Substance: LEVOTHYROXINE
     Dosage: UNK, QD
  4. LISINOPRIL. [Concomitant]
     Active Substance: LISINOPRIL
     Dosage: 10 MEQ, QD
  5. OXYGEN. [Concomitant]
     Active Substance: OXYGEN
  6. REVATIO [Concomitant]
     Active Substance: SILDENAFIL CITRATE
     Dosage: 20 MG, QD
  7. LASIX [Concomitant]
     Active Substance: FUROSEMIDE
  8. ASPIRIN. [Concomitant]
     Active Substance: ASPIRIN
     Dosage: UNK, QD
  9. ZYRTEC [Concomitant]
     Active Substance: CETIRIZINE HYDROCHLORIDE
     Dosage: UNK, QD
  10. POTASSIUM [Concomitant]
     Active Substance: POTASSIUM
     Dosage: 10 MEQ, QD
  11. GABAPENTIN. [Concomitant]
     Active Substance: GABAPENTIN
     Dosage: 300 MG, QD
  12. LORAZEPAM. [Concomitant]
     Active Substance: LORAZEPAM
     Dosage: UNK, QD
  13. ZOCOR [Concomitant]
     Active Substance: SIMVASTATIN
     Dosage: 10 MG, QD
  14. COREG [Concomitant]
     Active Substance: CARVEDILOL
     Dosage: 6.5 MG, QD

REACTIONS (16)
  - Emergency care [Unknown]
  - Urinary tract infection [Unknown]
  - Loss of personal independence in daily activities [Unknown]
  - Pneumonia [Unknown]
  - Dyspnoea [Unknown]
  - Fluid retention [Not Recovered/Not Resolved]
  - Nasal congestion [Unknown]
  - Abdominal distension [Recovered/Resolved]
  - Dysuria [Not Recovered/Not Resolved]
  - Oxygen saturation decreased [Unknown]
  - Colostomy [Unknown]
  - Abdominal pain [Not Recovered/Not Resolved]
  - Product dose omission [Unknown]
  - Renal failure [Not Recovered/Not Resolved]
  - Weight increased [Not Recovered/Not Resolved]
  - Rhinorrhoea [Unknown]

NARRATIVE: CASE EVENT DATE: 201805
